FAERS Safety Report 6262735-8 (Version None)
Quarter: 2009Q3

REPORT INFORMATION
  Report Type: 
  Country: None (occurrence: None)
  Receive Date: 20090708
  Receipt Date: 20090630
  Transmission Date: 20100115
  Serious: Yes (Death)
  Sender: FDA-Public Use
  Company Number: 2009AL001373

PATIENT
  Age: 83 Year
  Sex: Male
  Weight: 79.3795 kg

DRUGS (1)
  1. DIGOXIN [Suspect]
     Indication: CARDIAC FAILURE CONGESTIVE
     Dosage: DAILY, PO
     Route: 048
     Dates: start: 20040101, end: 20080101

REACTIONS (3)
  - CARDIAC DISORDER [None]
  - DIZZINESS [None]
  - OEDEMA PERIPHERAL [None]
